FAERS Safety Report 25101440 (Version 2)
Quarter: 2025Q2

REPORT INFORMATION
  Report Type: Spontaneous
  Country: US (occurrence: US)
  Receive Date: 20250320
  Receipt Date: 20250409
  Transmission Date: 20250717
  Serious: Yes (Other)
  Sender: BLUEPRINT MEDICINES
  Company Number: US-Blueprint Medicines Corporation-2025-AER-00517

PATIENT
  Age: 48 Year
  Sex: Female
  Weight: 32.5 kg

DRUGS (1)
  1. AYVAKIT [Suspect]
     Active Substance: AVAPRITINIB
     Indication: Systemic mastocytosis
     Route: 065

REACTIONS (3)
  - Nephrolithiasis [Not Recovered/Not Resolved]
  - Fluid retention [Unknown]
  - Memory impairment [Unknown]

NARRATIVE: CASE EVENT DATE: 20220407
